FAERS Safety Report 18130402 (Version 3)
Quarter: 2020Q4

REPORT INFORMATION
  Report Type: Spontaneous
  Country: FI (occurrence: FI)
  Receive Date: 20200810
  Receipt Date: 20201005
  Transmission Date: 20210113
  Serious: Yes (Other)
  Sender: FDA-Public Use
  Company Number: FI-MYLANLABS-2019M1082031

PATIENT
  Age: 34 Year
  Sex: Male

DRUGS (42)
  1. QUETIAPINE. [Interacting]
     Active Substance: QUETIAPINE
     Indication: AUTISM SPECTRUM DISORDER
  2. BISOPROLOL [Interacting]
     Active Substance: BISOPROLOL
     Indication: BEHAVIOUR DISORDER
     Dosage: UNK
     Route: 065
  3. ESCITALOPRAM [Interacting]
     Active Substance: ESCITALOPRAM OXALATE
     Indication: MENTAL DISORDER
  4. AMITRIPTYLINE                      /00002202/ [Interacting]
     Active Substance: AMITRIPTYLINE
     Indication: AUTISM SPECTRUM DISORDER
     Dosage: UNK
     Route: 065
  5. VALPROATE SODIUM. [Interacting]
     Active Substance: VALPROATE SODIUM
     Indication: MIGRAINE PROPHYLAXIS
     Dosage: 1200 MILLIGRAM, QD
     Route: 065
  6. VALPROATE SODIUM. [Interacting]
     Active Substance: VALPROATE SODIUM
     Indication: SEIZURE
  7. CANDESARTAN. [Suspect]
     Active Substance: CANDESARTAN
     Indication: PROPHYLAXIS
     Dosage: 16 MILLIGRAM, QD
     Dates: start: 2017
  8. QUETIAPINE. [Interacting]
     Active Substance: QUETIAPINE
     Indication: BEHAVIOUR DISORDER
  9. METOPROLOL. [Interacting]
     Active Substance: METOPROLOL
     Indication: MIGRAINE PROPHYLAXIS
     Dosage: UNK
     Route: 065
  10. BISOPROLOL [Interacting]
     Active Substance: BISOPROLOL
     Dosage: UNK
     Route: 065
  11. TOPIRAMATE. [Interacting]
     Active Substance: TOPIRAMATE
     Indication: PROPHYLAXIS
     Dosage: UNK
     Route: 065
     Dates: start: 2015
  12. OLANZAPINE. [Suspect]
     Active Substance: OLANZAPINE
     Indication: AUTISM SPECTRUM DISORDER
     Dosage: 10 MILLIGRAM, QD
     Route: 065
  13. PANTOPRAZOL                        /01263201/ [Suspect]
     Active Substance: PANTOPRAZOLE
     Dosage: 20 MILLIGRAM, QD
     Route: 065
  14. METOPROLOL. [Interacting]
     Active Substance: METOPROLOL
     Indication: BEHAVIOUR DISORDER
  15. OXCARBAZEPINE. [Interacting]
     Active Substance: OXCARBAZEPINE
     Indication: SEIZURE
     Dosage: 900 MILLIGRAM, QD
     Route: 065
  16. CARBAMAZEPINE. [Interacting]
     Active Substance: CARBAMAZEPINE
     Indication: SEIZURE
     Dosage: UNK
     Route: 065
  17. MELATONIN [Suspect]
     Active Substance: MELATONIN
     Indication: BEHAVIOUR DISORDER
     Dosage: 3 MILLIGRAM, QD
     Dates: start: 2017
  18. OLANZAPINE. [Suspect]
     Active Substance: OLANZAPINE
     Indication: MENTAL DISORDER
     Dosage: 10 MILLIGRAM, QD
     Dates: start: 2017
  19. PANTOPRAZOL                        /01263201/ [Suspect]
     Active Substance: PANTOPRAZOLE
     Indication: BEHAVIOUR DISORDER
     Dosage: 20 MILLIGRAM, QD
     Dates: start: 2017
  20. QUETIAPINE. [Interacting]
     Active Substance: QUETIAPINE
     Indication: MENTAL DISORDER
     Dosage: UNK
     Route: 065
  21. CITALOPRAM MYLAN [Interacting]
     Active Substance: CITALOPRAM HYDROBROMIDE
     Indication: MENTAL DISORDER
  22. CITALOPRAM MYLAN [Interacting]
     Active Substance: CITALOPRAM HYDROBROMIDE
     Indication: BEHAVIOUR DISORDER
  23. TOPIRAMATE. [Interacting]
     Active Substance: TOPIRAMATE
     Indication: BEHAVIOUR DISORDER
  24. AMITRIPTYLINE                      /00002202/ [Interacting]
     Active Substance: AMITRIPTYLINE
     Indication: MENTAL DISORDER
  25. VALPROATE SODIUM. [Interacting]
     Active Substance: VALPROATE SODIUM
     Indication: AFFECTIVE DISORDER
  26. LORAZEPAM. [Suspect]
     Active Substance: LORAZEPAM
     Indication: AUTISM SPECTRUM DISORDER
     Dosage: 3 MILLIGRAM, QD
     Route: 065
  27. RISPERIDONE. [Interacting]
     Active Substance: RISPERIDONE
     Indication: MENTAL DISORDER
     Dosage: 3 MILLIGRAM, QD
     Route: 065
  28. LORAZEPAM. [Suspect]
     Active Substance: LORAZEPAM
     Indication: MENTAL DISORDER
     Dosage: 3 MILLIGRAM, QD
     Route: 065
     Dates: start: 2017
  29. LORAZEPAM. [Suspect]
     Active Substance: LORAZEPAM
     Indication: BEHAVIOUR DISORDER
  30. LEVOMEPROMAZINE [Suspect]
     Active Substance: LEVOMEPROMAZINE
     Indication: MENTAL DISORDER
     Dosage: 100 MILLIGRAM, QD
     Route: 065
     Dates: start: 2017
  31. MELATONIN [Suspect]
     Active Substance: MELATONIN
     Dosage: 3 MILLIGRAM, QD
     Route: 065
  32. CITALOPRAM MYLAN [Interacting]
     Active Substance: CITALOPRAM HYDROBROMIDE
     Indication: AUTISM SPECTRUM DISORDER
     Dosage: UNK
     Route: 065
  33. ESCITALOPRAM [Interacting]
     Active Substance: ESCITALOPRAM OXALATE
     Indication: AUTISM SPECTRUM DISORDER
     Dosage: 10 MILLIGRAM, QD
     Dates: start: 2017
  34. RISPERIDONE. [Interacting]
     Active Substance: RISPERIDONE
     Indication: BEHAVIOUR DISORDER
  35. LEVOMEPROMAZINE [Suspect]
     Active Substance: LEVOMEPROMAZINE
     Indication: BEHAVIOUR DISORDER
  36. CANDESARTAN. [Interacting]
     Active Substance: CANDESARTAN
     Indication: BEHAVIOUR DISORDER
     Dosage: 16 MILLIGRAM, QD
     Route: 065
  37. CARBAMAZEPINE. [Interacting]
     Active Substance: CARBAMAZEPINE
     Indication: BEHAVIOUR DISORDER
  38. RISPERIDONE. [Interacting]
     Active Substance: RISPERIDONE
     Indication: AUTISM SPECTRUM DISORDER
     Dosage: 4 MILLIGRAM, QD
     Route: 065
     Dates: start: 2017
  39. ESCITALOPRAM [Interacting]
     Active Substance: ESCITALOPRAM OXALATE
     Indication: BEHAVIOUR DISORDER
     Dosage: 10 MILLIGRAM, QD
     Route: 065
  40. MACROGOL 3350 [Interacting]
     Active Substance: POLYETHYLENE GLYCOL 3350
     Indication: BEHAVIOUR DISORDER
     Dosage: 3 DOSAGE FORM, QD (3 SACHETS PER DAY/ 3 BAGS PER DAY)
     Route: 065
  41. LEVOMEPROMAZINE [Suspect]
     Active Substance: LEVOMEPROMAZINE
     Indication: AUTISM SPECTRUM DISORDER
     Dosage: 100 MILLIGRAM, QD
     Route: 065
  42. OLANZAPINE. [Suspect]
     Active Substance: OLANZAPINE
     Indication: BEHAVIOUR DISORDER

REACTIONS (11)
  - Behaviour disorder [Not Recovered/Not Resolved]
  - Medication error [Unknown]
  - Aggression [Not Recovered/Not Resolved]
  - Intentional product use issue [Not Recovered/Not Resolved]
  - Intentional self-injury [Not Recovered/Not Resolved]
  - Condition aggravated [Unknown]
  - Product use in unapproved indication [Unknown]
  - Off label use [Unknown]
  - Drug interaction [Unknown]
  - Drug ineffective [Unknown]
  - Drug ineffective for unapproved indication [Not Recovered/Not Resolved]

NARRATIVE: CASE EVENT DATE: 2015
